FAERS Safety Report 6870654-9 (Version None)
Quarter: 2010Q3

REPORT INFORMATION
  Report Type: 
  Country: None (occurrence: None)
  Receive Date: 20100723
  Receipt Date: 20100712
  Transmission Date: 20110219
  Serious: Yes (Other)
  Sender: FDA-Public Use
  Company Number: PHEH2010US03259

PATIENT
  Sex: Female
  Weight: 85.714 kg

DRUGS (12)
  1. RECLAST [Suspect]
     Indication: OSTEOPOROSIS
     Dosage: 5 MG, UNK
     Route: 042
     Dates: start: 20091023, end: 20091023
  2. HYDROCHLOROTHIAZIDE [Concomitant]
     Indication: HYPERTENSION
     Dosage: 25 MG, QD
     Route: 048
  3. MELOXICAM [Concomitant]
     Indication: ARTHRALGIA
     Dosage: 7.5 MG, QD
     Route: 048
  4. LISINOPRIL [Concomitant]
     Indication: HYPERTENSION
     Dosage: 40 MG, QD
     Route: 048
  5. LISINOPRIL [Concomitant]
     Dosage: 20 MG
     Route: 048
  6. CALCIUM W/VITAMIN D NOS [Concomitant]
     Indication: OSTEOPOROSIS
     Dosage: 600/200 BID
     Route: 048
  7. LEVOTHYROXINE SODIUM [Concomitant]
     Indication: HYPOTHYROIDISM
     Dosage: 100 UG, QD
     Route: 048
  8. LEVOTHYROXINE SODIUM [Concomitant]
     Dosage: 100 MG
     Route: 048
  9. AMLODIPINE [Concomitant]
     Dosage: 50 MG
     Route: 048
  10. LOVASTATIN [Concomitant]
     Dosage: 40 MG
     Route: 048
  11. VITAMINS [Concomitant]
     Route: 048
  12. CALCIUM [Concomitant]
     Route: 048

REACTIONS (6)
  - CONJUNCTIVAL OEDEMA [None]
  - EXOPHTHALMOS [None]
  - EYE PAIN [None]
  - INTRAOCULAR PRESSURE INCREASED [None]
  - ORBITAL PSEUDOTUMOUR [None]
  - VISUAL ACUITY REDUCED [None]
